FAERS Safety Report 7434220-9 (Version None)
Quarter: 2011Q2

REPORT INFORMATION
  Report Type: 
  Country: None (occurrence: None)
  Receive Date: 20110425
  Receipt Date: 20110422
  Transmission Date: 20111010
  Serious: No
  Sender: FDA-Public Use
  Company Number: US-PFIZER INC-2011088138

PATIENT
  Sex: Female
  Weight: 52.6 kg

DRUGS (2)
  1. PHENERGAN HCL [Suspect]
     Indication: NAUSEA
     Dosage: UNK
     Dates: start: 20100101
  2. CHANTIX [Suspect]
     Indication: SMOKING CESSATION THERAPY
     Dosage: 0.5 MG, DAILY
     Route: 048
     Dates: start: 20100101, end: 20100101

REACTIONS (2)
  - NAUSEA [None]
  - SOMNOLENCE [None]
